FAERS Safety Report 22939476 (Version 5)
Quarter: 2023Q4

REPORT INFORMATION
  Report Type: Report from Study
  Country: US (occurrence: US)
  Receive Date: 20230913
  Receipt Date: 20231228
  Transmission Date: 20240110
  Serious: Yes (Hospitalization, Other)
  Sender: FDA-Public Use
  Company Number: US-EXELIXIS-CABO-23066855

PATIENT
  Sex: Female

DRUGS (18)
  1. CABOMETYX [Suspect]
     Active Substance: CABOZANTINIB S-MALATE
     Indication: Renal cancer
     Dosage: 20 MG, QD
     Route: 048
  2. CABOMETYX [Suspect]
     Active Substance: CABOZANTINIB S-MALATE
     Dosage: 60 MG
     Route: 048
  3. CABOMETYX [Suspect]
     Active Substance: CABOZANTINIB S-MALATE
     Dosage: 20 MG, QD
     Route: 048
     Dates: start: 20230905
  4. MIRALAX [Concomitant]
     Active Substance: POLYETHYLENE GLYCOL 3350
  5. PRILOSEC [Concomitant]
     Active Substance: OMEPRAZOLE MAGNESIUM
  6. ALLEGRA ALLERGY [Concomitant]
     Active Substance: FEXOFENADINE HYDROCHLORIDE
  7. CALCIUM [Concomitant]
     Active Substance: CALCIUM
  8. COLACE [Concomitant]
     Active Substance: DOCUSATE SODIUM
  9. LACTOBACILLUS ACIDOPHILUS [Concomitant]
     Active Substance: LACTOBACILLUS ACIDOPHILUS
  10. TRAMADOL HCL [Concomitant]
     Active Substance: TRAMADOL HYDROCHLORIDE
  11. VITAMIN D3 [Concomitant]
     Active Substance: CHOLECALCIFEROL
  12. XGEVA [Concomitant]
     Active Substance: DENOSUMAB
  13. LOSARTAN POTASSIUM [Concomitant]
     Active Substance: LOSARTAN POTASSIUM
  14. METOPROLOL SUCCINATE [Concomitant]
     Active Substance: METOPROLOL SUCCINATE
  15. MONTELUKAST [Concomitant]
     Active Substance: MONTELUKAST SODIUM
  16. OXYCODONE HYDROCHLORIDE [Concomitant]
     Active Substance: OXYCODONE HYDROCHLORIDE
  17. AMLODIPINE BESYLATE [Concomitant]
     Active Substance: AMLODIPINE BESYLATE
     Dosage: UNK
  18. POTASSIUM CHLORIDE [Concomitant]
     Active Substance: POTASSIUM CHLORIDE

REACTIONS (26)
  - Limb mass [Not Recovered/Not Resolved]
  - Haematochezia [Not Recovered/Not Resolved]
  - Blood pressure increased [Not Recovered/Not Resolved]
  - Renal function test abnormal [Not Recovered/Not Resolved]
  - Brain fog [Not Recovered/Not Resolved]
  - Somnolence [Not Recovered/Not Resolved]
  - Hepatic enzyme increased [Not Recovered/Not Resolved]
  - Blood potassium decreased [Recovering/Resolving]
  - Abdominal pain upper [Recovering/Resolving]
  - Fatigue [Not Recovered/Not Resolved]
  - Nausea [Not Recovered/Not Resolved]
  - Decreased appetite [Not Recovered/Not Resolved]
  - Constipation [Not Recovered/Not Resolved]
  - Diarrhoea [Not Recovered/Not Resolved]
  - Oral pain [Recovering/Resolving]
  - Dyspnoea [Not Recovered/Not Resolved]
  - Pruritus [Not Recovered/Not Resolved]
  - Muscle spasms [Unknown]
  - Oropharyngeal pain [Not Recovered/Not Resolved]
  - Eye pruritus [Not Recovered/Not Resolved]
  - Heart rate increased [Unknown]
  - Gait inability [Unknown]
  - Headache [Not Recovered/Not Resolved]
  - Toothache [Recovering/Resolving]
  - Hyperaesthesia teeth [Recovering/Resolving]
  - Haemorrhoids [Not Recovered/Not Resolved]
